FAERS Safety Report 11324076 (Version 4)
Quarter: 2015Q3

REPORT INFORMATION
  Report Type: Report from Study
  Country: HN (occurrence: HN)
  Receive Date: 20150730
  Receipt Date: 20150828
  Transmission Date: 20151125
  Serious: Yes (Life-Threatening, Disabling, Other)
  Sender: FDA-Public Use
  Company Number: HN-BAYER-2015-376525

PATIENT
  Age: 62 Year
  Sex: Female

DRUGS (5)
  1. ALDACTONE [Concomitant]
     Active Substance: SPIRONOLACTONE
     Dosage: 50 MG, UNK
  2. LANZOPRAZOL [Concomitant]
     Active Substance: LANSOPRAZOLE
  3. NEXAVAR [Suspect]
     Active Substance: SORAFENIB
     Indication: HEPATIC CANCER
     Dosage: UNK
     Route: 048
     Dates: start: 20150528
  4. FUROSEMIDA [Concomitant]
     Active Substance: FUROSEMIDE
     Dosage: 40 MG, UNK
  5. PROPANOLOL [Concomitant]
     Active Substance: PROPRANOLOL HYDROCHLORIDE

REACTIONS (15)
  - Dysuria [Not Recovered/Not Resolved]
  - Haemorrhoids [Not Recovered/Not Resolved]
  - Hyperaesthesia [None]
  - Tinnitus [Not Recovered/Not Resolved]
  - Haemorrhoidal haemorrhage [None]
  - Hypophagia [Recovered/Resolved]
  - Erythema [None]
  - Palmar-plantar erythrodysaesthesia syndrome [None]
  - Diarrhoea [Recovered/Resolved]
  - Pain [Not Recovered/Not Resolved]
  - Red cell distribution width increased [None]
  - Haemorrhoids [None]
  - Platelet count decreased [None]
  - Alpha 1 foetoprotein increased [Not Recovered/Not Resolved]
  - Genital hyperaesthesia [Not Recovered/Not Resolved]

NARRATIVE: CASE EVENT DATE: 20150604
